FAERS Safety Report 9305625 (Version 1)
Quarter: 2013Q2

REPORT INFORMATION
  Report Type: Spontaneous
  Country: PL (occurrence: PL)
  Receive Date: 20130523
  Receipt Date: 20130523
  Transmission Date: 20140414
  Serious: Yes (Hospitalization)
  Sender: FDA-Public Use
  Company Number: PL-JNJFOC-20130509089

PATIENT
  Age: 28 Year
  Sex: Male

DRUGS (2)
  1. NICORETTE INVISIPATCH 25MG/16H [Suspect]
     Route: 062
  2. NICORETTE INVISIPATCH 25MG/16H [Suspect]
     Indication: PRODUCT USED FOR UNKNOWN INDICATION
     Route: 062
     Dates: start: 20130514, end: 20130514

REACTIONS (2)
  - Blood pressure fluctuation [Recovered/Resolved]
  - Syncope [Recovered/Resolved]
